FAERS Safety Report 24778792 (Version 1)
Quarter: 2024Q4

REPORT INFORMATION
  Report Type: Spontaneous
  Country: US (occurrence: US)
  Receive Date: 20241226
  Receipt Date: 20241226
  Transmission Date: 20250114
  Serious: No
  Sender: INCYTE
  Company Number: US-EVENT-000845

PATIENT

DRUGS (1)
  1. OPZELURA [Suspect]
     Active Substance: RUXOLITINIB PHOSPHATE
     Indication: Seborrhoeic dermatitis
     Dosage: APPLY A THIN LAYER TO AFFECTED AREA(S) OF NECK AND BACK TWICE DAILY AS DIRECTED
     Route: 065
     Dates: start: 202412

REACTIONS (1)
  - Off label use [Unknown]

NARRATIVE: CASE EVENT DATE: 20241201
